FAERS Safety Report 22278279 (Version 1)
Quarter: 2023Q2

REPORT INFORMATION
  Report Type: Spontaneous
  Country: US (occurrence: US)
  Receive Date: 20230503
  Receipt Date: 20230503
  Transmission Date: 20230722
  Serious: Yes (Hospitalization)
  Sender: FDA-Public Use
  Company Number: US-ABBVIE-4749726

PATIENT
  Age: 58 Year
  Sex: Female

DRUGS (1)
  1. HUMIRA [Suspect]
     Active Substance: ADALIMUMAB
     Indication: Rheumatoid arthritis
     Dosage: STRENGTH: 40 MG
     Route: 058

REACTIONS (5)
  - Blood test abnormal [Unknown]
  - Blood glucose abnormal [Unknown]
  - Wrong technique in product usage process [Not Recovered/Not Resolved]
  - Rheumatoid arthritis [Unknown]
  - Lung disorder [Unknown]

NARRATIVE: CASE EVENT DATE: 20230430
